FAERS Safety Report 10207101 (Version 1)
Quarter: 2014Q2

REPORT INFORMATION
  Report Type: Spontaneous
  Country: US (occurrence: None)
  Receive Date: 20140527
  Receipt Date: 20140527
  Transmission Date: 20141212
  Serious: Yes (Hospitalization)
  Sender: FDA-Public Use
  Company Number: None

PATIENT
  Age: 60 Year
  Sex: Male

DRUGS (5)
  1. NAFCILLIN [Suspect]
     Indication: STAPHYLOCOCCAL BACTERAEMIA
     Route: 042
     Dates: start: 20120709, end: 20120724
  2. NAFCILLIN [Suspect]
     Route: 042
     Dates: start: 20120709, end: 20120724
  3. VANCOMYCIN [Concomitant]
  4. LEVOFLOXACIN [Concomitant]
  5. GENTAMYCIN [Concomitant]

REACTIONS (2)
  - Tubulointerstitial nephritis [None]
  - Renal failure acute [None]
